FAERS Safety Report 10727812 (Version 1)
Quarter: 2015Q1

REPORT INFORMATION
  Report Type: Spontaneous
  Country: BR (occurrence: BR)
  Receive Date: 20150121
  Receipt Date: 20150121
  Transmission Date: 20150721
  Serious: Yes (Other)
  Sender: FDA-Public Use
  Company Number: BR-GLAXOSMITHKLINE-BR2015GSK003476

PATIENT
  Age: 32 Year
  Sex: Female
  Weight: 88 kg

DRUGS (2)
  1. CLINDOXYL [Suspect]
     Active Substance: BENZOYL PEROXIDE\CLINDAMYCIN PHOSPHATE
     Indication: ACNE
     Dosage: 1 DF, QD
     Route: 061
     Dates: start: 20141230, end: 20150108
  2. MINESOL SPF 30 (ROC, JOHNSON + JOHNSON) [Suspect]
     Active Substance: OCTOCRYLENE
     Indication: PROPHYLAXIS AGAINST SOLAR RADIATION
     Dosage: 1 DF, BID
     Dates: start: 20141230

REACTIONS (2)
  - Face oedema [Not Recovered/Not Resolved]
  - Oral disorder [Not Recovered/Not Resolved]

NARRATIVE: CASE EVENT DATE: 20150108
